FAERS Safety Report 8461211-1 (Version None)
Quarter: 2012Q2

REPORT INFORMATION
  Report Type: 
  Country: None (occurrence: None)
  Receive Date: 20120618
  Receipt Date: 20120618
  Transmission Date: 20120825
  Serious: No
  Sender: FDA-Public Use
  Company Number: None

PATIENT
  Sex: Male

DRUGS (2)
  1. LIPITOR [Concomitant]
  2. LISINOPRIL AND HYDROCHLOROTHIAZIDE [Suspect]
     Indication: BLOOD PRESSURE
     Dosage: 20-12.5MG ONCE A DAY PO
     Route: 048
     Dates: start: 20120601, end: 20120611

REACTIONS (1)
  - TENDONITIS [None]
